FAERS Safety Report 6583691-9 (Version None)
Quarter: 2010Q1

REPORT INFORMATION
  Report Type: 
  Country: None (occurrence: None)
  Receive Date: 20100213
  Receipt Date: 20100213
  Transmission Date: 20100710
  Serious: Yes (Other)
  Sender: FDA-Public Use
  Company Number: None

PATIENT
  Sex: Male
  Weight: 77.1115 kg

DRUGS (1)
  1. PROPECIA [Suspect]
     Indication: ALOPECIA
     Dates: start: 19920101, end: 20100101

REACTIONS (3)
  - CLOSTRIDIAL INFECTION [None]
  - FOCAL NODULAR HYPERPLASIA [None]
  - STEATORRHOEA [None]
